FAERS Safety Report 7423714-8 (Version None)
Quarter: 2011Q2

REPORT INFORMATION
  Report Type: 
  Country: None (occurrence: None)
  Receive Date: 20110419
  Receipt Date: 20110415
  Transmission Date: 20111010
  Serious: Yes (Death)
  Sender: FDA-Public Use
  Company Number: IT-ASTRAZENECA-2011SE21893

PATIENT
  Sex: Female

DRUGS (1)
  1. MEROPENEM [Suspect]
     Route: 042

REACTIONS (4)
  - TOXIC EPIDERMAL NECROLYSIS [None]
  - EPIDERMOLYSIS [None]
  - SEPSIS [None]
  - RESPIRATORY FAILURE [None]
